FAERS Safety Report 7043080-X (Version None)
Quarter: 2010Q3

REPORT INFORMATION
  Report Type: 
  Country: None (occurrence: None)
  Receive Date: 20100929
  Receipt Date: 20100820
  Transmission Date: 20110219
  Serious: No
  Sender: FDA-Public Use
  Company Number: US-WYE-H17040910

PATIENT
  Sex: Male

DRUGS (1)
  1. PRISTIQ [Suspect]
     Dates: start: 20100819

REACTIONS (1)
  - RESTLESSNESS [None]
